FAERS Safety Report 9086600 (Version 1)
Quarter: 2013Q1

REPORT INFORMATION
  Report Type: Spontaneous
  Country: FR (occurrence: FR)
  Receive Date: 20130217
  Receipt Date: 20130217
  Transmission Date: 20140127
  Serious: Yes (Other)
  Sender: FDA-Public Use
  Company Number: FR-009507513-1301FRA010784

PATIENT
  Age: 62 Year
  Sex: Male
  Weight: 84 kg

DRUGS (8)
  1. JANUMET [Suspect]
     Indication: TYPE 2 DIABETES MELLITUS
     Dosage: 1 DF, BID
     Route: 048
     Dates: start: 20130118, end: 20130120
  2. CARDENSIEL [Concomitant]
     Dosage: 2.5 MG, QD
     Dates: start: 20060814
  3. RAMIPRIL [Concomitant]
     Dosage: 2.5 MG, QD
     Dates: start: 20071114
  4. CRESTOR [Concomitant]
     Dosage: 5 MG, QD
     Dates: start: 20071114
  5. KARDEGIC [Concomitant]
     Dosage: 160 MG, QD
     Dates: start: 20120119
  6. ADROVANCE [Concomitant]
     Dosage: UNK
     Dates: start: 20100311
  7. NOVATREX (METHOTREXATE) [Concomitant]
     Indication: RHEUMATOID ARTHRITIS
     Dosage: 20 MG, QW
  8. OSCILLOCOCCINUM [Concomitant]
     Dosage: UNK
     Dates: start: 20130120

REACTIONS (4)
  - Abdominal pain lower [Recovered/Resolved]
  - Constipation [Recovered/Resolved]
  - Diarrhoea [Recovered/Resolved]
  - Haematochezia [Recovered/Resolved]
